FAERS Safety Report 7739169-X (Version None)
Quarter: 2011Q3

REPORT INFORMATION
  Report Type: 
  Country: None (occurrence: None)
  Receive Date: 20110909
  Receipt Date: 20110906
  Transmission Date: 20111222
  Serious: Yes (Other)
  Sender: FDA-Public Use
  Company Number: US-RB-027963-11

PATIENT
  Age: 15 Year
  Sex: Male

DRUGS (2)
  1. DELSYM [Suspect]
     Route: 048
  2. GUAIFENESIN [Suspect]

REACTIONS (3)
  - OVERDOSE [None]
  - DRUG ABUSE [None]
  - FEELING ABNORMAL [None]
